FAERS Safety Report 22357783 (Version 7)
Quarter: 2023Q4

REPORT INFORMATION
  Report Type: Spontaneous
  Country: US (occurrence: US)
  Receive Date: 20230524
  Receipt Date: 20231019
  Transmission Date: 20240110
  Serious: Yes (Hospitalization)
  Sender: FDA-Public Use
  Company Number: US-GLAXOSMITHKLINE-US2023AMR068727

PATIENT
  Sex: Female

DRUGS (2)
  1. ZEJULA [Suspect]
     Active Substance: NIRAPARIB
     Indication: Ovarian cancer
     Dosage: 200 MG, QD
     Dates: end: 20230616
  2. ZEJULA [Suspect]
     Active Substance: NIRAPARIB
     Indication: Ovarian cancer
     Dosage: 200 MG, QD

REACTIONS (9)
  - Platelet count decreased [Recovering/Resolving]
  - Cough [Unknown]
  - Fatigue [Unknown]
  - Blood creatine increased [Unknown]
  - Muscular weakness [Unknown]
  - Red blood cell count decreased [Not Recovered/Not Resolved]
  - Anaemia [Unknown]
  - Full blood count decreased [Unknown]
  - Asthenia [Unknown]
